FAERS Safety Report 8452256-6 (Version None)
Quarter: 2012Q2

REPORT INFORMATION
  Report Type: 
  Country: None (occurrence: None)
  Receive Date: 20120620
  Receipt Date: 20120428
  Transmission Date: 20120825
  Serious: No
  Sender: FDA-Public Use
  Company Number: US-VERTEX PHARMACEUTICALS INC.-AE-2012-004857

PATIENT
  Sex: Male
  Weight: 72.64 kg

DRUGS (4)
  1. RIBAVIRIN [Concomitant]
     Indication: HEPATITIS C
     Dates: start: 20120323
  2. INCIVEK [Suspect]
     Indication: HEPATITIS C
     Route: 048
     Dates: start: 20120323
  3. PEGASYS [Concomitant]
     Indication: HEPATITIS C
     Route: 058
     Dates: start: 20120323
  4. RIBAVIRIN [Concomitant]
     Dates: start: 20120416

REACTIONS (4)
  - BLOOD COUNT ABNORMAL [None]
  - JOINT SWELLING [None]
  - MUSCULOSKELETAL PAIN [None]
  - DIARRHOEA [None]
